FAERS Safety Report 11803283 (Version 1)
Quarter: 2015Q4

REPORT INFORMATION
  Report Type: Spontaneous
  Country: US (occurrence: US)
  Receive Date: 20151204
  Receipt Date: 20151204
  Transmission Date: 20160305
  Serious: No
  Sender: FDA-Public Use
  Company Number: US-PFIZER INC-2015384816

PATIENT
  Age: 76 Year
  Sex: Female

DRUGS (4)
  1. IBRANCE [Suspect]
     Active Substance: PALBOCICLIB
     Dosage: 125 MG (FULL STRENGTH)
  2. FASLODEX [Suspect]
     Active Substance: FULVESTRANT
  3. ZOMETA [Suspect]
     Active Substance: ZOLEDRONIC ACID
  4. VICODIN [Suspect]
     Active Substance: ACETAMINOPHEN\HYDROCODONE BITARTRATE

REACTIONS (3)
  - Product use issue [Unknown]
  - Blood creatinine increased [Unknown]
  - Creatinine renal clearance increased [Unknown]
